FAERS Safety Report 14295372 (Version 4)
Quarter: 2019Q3

REPORT INFORMATION
  Report Type: Spontaneous
  Country: US (occurrence: US)
  Receive Date: 20171218
  Receipt Date: 20190916
  Transmission Date: 20191004
  Serious: No
  Sender: FDA-Public Use
  Company Number: US-PFIZER INC-2017184602

PATIENT
  Age: 48 Year
  Sex: Female

DRUGS (29)
  1. KLOR-CON M20 [Concomitant]
     Active Substance: POTASSIUM CHLORIDE
     Indication: HYPOKALAEMIC SYNDROME
     Dosage: 1 DF, 2X/DAY AS NEEDED
  2. SINGULAIR [Concomitant]
     Active Substance: MONTELUKAST SODIUM
     Dosage: 10 MG, 1X/DAY
  3. LYRICA [Suspect]
     Active Substance: PREGABALIN
     Indication: TRIGEMINAL NEURALGIA
  4. DOCUSATE SODIUM. [Concomitant]
     Active Substance: DOCUSATE SODIUM
     Indication: IRRITABLE BOWEL SYNDROME
     Dosage: 100 MG, 4X/DAY
  5. ESTRACE [Concomitant]
     Active Substance: ESTRADIOL
     Dosage: 1 G, (THREE TIMES PER WEEK)
  6. MIRALAX [Concomitant]
     Active Substance: POLYETHYLENE GLYCOL 3350
     Dosage: 1 DF, AS NEEDED (AT NIGHT)
  7. BACTROBAN [Concomitant]
     Active Substance: MUPIROCIN\MUPIROCIN CALCIUM
     Dosage: UNK, 2X/DAY AS NEEDED, NASAL
  8. LYRICA [Suspect]
     Active Substance: PREGABALIN
     Indication: NEURITIS
  9. LYRICA [Suspect]
     Active Substance: PREGABALIN
     Indication: PAIN
  10. FLONASE [Concomitant]
     Active Substance: FLUTICASONE PROPIONATE
     Indication: RHINITIS ALLERGIC
     Dosage: 50 UG, 1X/DAY (TWO SPRAYS EACH NOSTRIL IN MORNING)
  11. QUATIAPINE [Concomitant]
     Active Substance: QUETIAPINE
     Dosage: 50 MG IN MORNING AND 350 MG AT NIGHT
  12. DIFUCAN [Concomitant]
     Indication: FUNGAL INFECTION
     Dosage: 200 MG, 2X/DAY (AS NEEDED)
  13. GUAIFENESIN. [Concomitant]
     Active Substance: GUAIFENESIN
     Indication: SEASONAL ALLERGY
     Dosage: 1200 MG, 2X/DAY
  14. GUAIFENESIN. [Concomitant]
     Active Substance: GUAIFENESIN
     Indication: NASAL CONGESTION
  15. MIRTAZAPINE. [Concomitant]
     Active Substance: MIRTAZAPINE
     Dosage: 7.5 UNK, 1X/DAY AT NIGHT
  16. VIVELLE-DOT [Concomitant]
     Active Substance: ESTRADIOL
     Dosage: 0.1 MG, 2X/WEEK (TUESDAY + FRIDAY)
  17. NYSTATIN. [Concomitant]
     Active Substance: NYSTATIN
     Indication: FUNGAL INFECTION
     Dosage: 1000000 IU, 4X/DAY
     Route: 048
  18. TESSALON [Concomitant]
     Active Substance: BENZONATATE
     Indication: COUGH
     Dosage: 1 DF, 3X/DAY
  19. VENTOLIN HFA [Concomitant]
     Active Substance: ALBUTEROL SULFATE
     Indication: ASTHMA
     Dosage: UNK, AS NEEDED,
  20. PROCTOSOL [Concomitant]
     Dosage: 2.5 %, 1X/DAY
  21. LYRICA [Suspect]
     Active Substance: PREGABALIN
     Indication: FIBROMYALGIA
  22. COMBIVENT [Concomitant]
     Active Substance: ALBUTEROL SULFATE\IPRATROPIUM BROMIDE
     Indication: ASTHMA
     Dosage: UNK, 3X/DAY AS NEEDED
  23. LYRICA [Suspect]
     Active Substance: PREGABALIN
     Indication: NEURALGIA
     Dosage: 150 MG, 4X/DAY (1 CAPSULE FOUR TIMES PER DAY 90 DAYS)
     Route: 048
  24. SODIUM CHLORIDE. [Concomitant]
     Active Substance: SODIUM CHLORIDE
     Indication: HYPONATRAEMIC SYNDROME
     Dosage: 1 GRAM TABLET, AS NEEDED
  25. HYDROXYXINE [Concomitant]
     Dosage: 100 MG, 1X/DAY
  26. CALCIUM WITH VITAMIN D3 [Concomitant]
     Active Substance: CALCIUM CARBONATE\CHOLECALCIFEROL
     Dosage: 2 DF, 1X/DAY
  27. TYLENOL [Concomitant]
     Active Substance: ACETAMINOPHEN
     Dosage: 1300 MG (TWO 650 MG TABLETS), DAILY AT NIGHT
  28. OMEPRAZOLE. [Concomitant]
     Active Substance: OMEPRAZOLE
     Indication: GASTROOESOPHAGEAL REFLUX DISEASE
     Dosage: 40 MG, 2X/DAY
  29. NYSTATIN AND TRIAMCINOLONE [Concomitant]
     Active Substance: NYSTATIN\TRIAMCINOLONE ACETONIDE
     Indication: URETHRAL DISORDER
     Dosage: UNK, 2X/DAY AS NEEDED

REACTIONS (3)
  - Withdrawal syndrome [Unknown]
  - Blood sodium decreased [Unknown]
  - Blood potassium decreased [Unknown]
